FAERS Safety Report 11972045 (Version 2)
Quarter: 2016Q1

REPORT INFORMATION
  Report Type: Report from Study
  Country: DE (occurrence: IT)
  Receive Date: 20160128
  Receipt Date: 20160225
  Transmission Date: 20160526
  Serious: Yes (Other)
  Sender: FDA-Public Use
  Company Number: IT-FRI-1000082330

PATIENT
  Age: 76 Year
  Sex: Female

DRUGS (5)
  1. MEMANTINE. [Suspect]
     Active Substance: MEMANTINE
     Indication: DEMENTIA ALZHEIMER^S TYPE
     Dosage: 20 MG
     Dates: start: 20150720, end: 20150820
  2. CARDIOASPIRIN [Concomitant]
     Active Substance: ASPIRIN
  3. ENAPREN ^20 MG COMPRESSE^ [Concomitant]
     Dosage: 10 MG
  4. LIMPIDEX [Concomitant]
     Active Substance: LANSOPRAZOLE
     Dosage: 15 MG
  5. NORVASC ^5 MG COMPRESSE^ [Concomitant]
     Dosage: 2.5 MG

REACTIONS (3)
  - Agitation [Recovered/Resolved]
  - Disorientation [Recovered/Resolved]
  - Confusional state [Recovered/Resolved]

NARRATIVE: CASE EVENT DATE: 20150810
